FAERS Safety Report 6910681-6 (Version None)
Quarter: 2010Q3

REPORT INFORMATION
  Report Type: 
  Country: None (occurrence: None)
  Receive Date: 20100806
  Receipt Date: 20100802
  Transmission Date: 20110219
  Serious: Yes (Death, Hospitalization)
  Sender: FDA-Public Use
  Company Number: FR-CELGENEUS-056-50794-10080173

PATIENT

DRUGS (3)
  1. VIDAZA [Suspect]
     Indication: NEOPLASM
     Route: 058
     Dates: start: 20040901
  2. VIDAZA [Suspect]
     Indication: ACUTE MYELOID LEUKAEMIA
     Route: 058
     Dates: start: 20040901
  3. VIDAZA [Suspect]
     Route: 058
     Dates: start: 20040901

REACTIONS (12)
  - CARDIAC FAILURE [None]
  - CONSTIPATION [None]
  - DEATH [None]
  - DIARRHOEA [None]
  - DISEASE PROGRESSION [None]
  - HAEMORRHAGE [None]
  - INFECTION [None]
  - INJECTION SITE REACTION [None]
  - NO THERAPEUTIC RESPONSE [None]
  - RASH [None]
  - SEPSIS [None]
  - THROMBOSIS [None]
